FAERS Safety Report 8554800-7 (Version None)
Quarter: 2012Q3

REPORT INFORMATION
  Report Type: 
  Country: None (occurrence: None)
  Receive Date: 20120731
  Receipt Date: 20120723
  Transmission Date: 20120928
  Serious: Yes (Hospitalization)
  Sender: FDA-Public Use
  Company Number: US-ACTELION-A-NJ2012-68755

PATIENT
  Age: 83 Year
  Sex: Female

DRUGS (16)
  1. AGRYLIN [Concomitant]
  2. GLUCOSAMINE [Concomitant]
  3. NORVASC [Concomitant]
  4. FUROSEMIDE [Concomitant]
  5. VITAMIN D2 [Concomitant]
  6. ATENOLOL [Concomitant]
  7. MULTI-VITAMINS [Concomitant]
  8. TRACLEER [Suspect]
     Indication: PULMONARY ARTERIAL HYPERTENSION
     Dosage: UNK
     Route: 048
     Dates: start: 20091201
  9. IMODIUM A-D [Concomitant]
  10. PAXIL [Concomitant]
  11. PROVENTIL-HFA [Concomitant]
  12. MAXZIDE [Concomitant]
  13. DITROPAN [Concomitant]
  14. NAPROXEN (ALEVE) [Concomitant]
  15. ASPIRIN [Concomitant]
  16. TIMOLOL MALEATE [Concomitant]

REACTIONS (3)
  - FLUID RETENTION [None]
  - CELLULITIS [None]
  - CONDITION AGGRAVATED [None]
